FAERS Safety Report 5493519-6 (Version None)
Quarter: 2007Q4

REPORT INFORMATION
  Report Type: 
  Country: None (occurrence: None)
  Receive Date: 20071023
  Receipt Date: 20071009
  Transmission Date: 20080405
  Serious: Yes (Hospitalization)
  Sender: FDA-Public Use
  Company Number: US-ELI_LILLY_AND_COMPANY-US200708006348

PATIENT
  Sex: Female
  Weight: 90.249 kg

DRUGS (7)
  1. BYETTA [Suspect]
     Indication: TYPE 2 DIABETES MELLITUS
     Dosage: 5 UG, 2/D
     Route: 058
     Dates: start: 20070101
  2. BYETTA [Suspect]
     Dosage: 10 UG, UNK
     Dates: start: 20070101
  3. BYETTA [Suspect]
     Dosage: 10 UG, 2/D
     Route: 058
     Dates: start: 20070101
  4. ACTOS [Concomitant]
     Dosage: 15 MG, UNK
  5. LANTUS [Concomitant]
     Indication: DIABETES MELLITUS
     Dosage: 100 U, EACH EVENING
     Route: 058
     Dates: start: 20020101
  6. HUMALOG [Concomitant]
     Indication: DIABETES MELLITUS
     Dosage: 20 U, 3/D
     Route: 058
     Dates: start: 19950101
  7. ANTIHYPERTENSIVES [Concomitant]
     Dates: start: 19950101

REACTIONS (1)
  - HEART RATE ABNORMAL [None]
